FAERS Safety Report 5246241-5 (Version None)
Quarter: 2007Q1

REPORT INFORMATION
  Report Type: 
  Country: None (occurrence: None)
  Receive Date: 20070221
  Receipt Date: 20070209
  Transmission Date: 20070707
  Serious: Yes (Other)
  Sender: FDA-Public Use
  Company Number: GXKR2006PL07704

PATIENT
  Age: 31 Year
  Sex: Female
  Weight: 54 kg

DRUGS (2)
  1. KETONAL (NGX)(KETOPROFEN) UNKNOWN [Suspect]
     Dosage: 100 MG, QD, ORAL
     Route: 048
     Dates: start: 20061112, end: 20061113
  2. DICLOFENAC(DICLOFENAC) [Suspect]
     Dosage: 100 MG, QD, ORAL
     Route: 048
     Dates: start: 20061112, end: 20061112

REACTIONS (2)
  - ABORTION SPONTANEOUS [None]
  - DRUG EXPOSURE DURING PREGNANCY [None]
